FAERS Safety Report 4327658-X (Version None)
Quarter: 2004Q1

REPORT INFORMATION
  Report Type: 
  Country: None (occurrence: None)
  Receive Date: 20040325
  Receipt Date: 20040325
  Transmission Date: 20041129
  Serious: Yes (Hospitalization)
  Sender: FDA-Public Use
  Company Number: U2262S22MAR2004JWH

PATIENT
  Age: 58 Year
  Sex: Male
  Weight: 141.5 kg

DRUGS (1)
  1. RITUXAN [Suspect]
     Indication: WEGENER'S GRANULOMATOSIS
     Dosage: 375 MG ONCE WKLY IV
     Route: 042
     Dates: start: 20040322, end: 20040322

REACTIONS (8)
  - BREATH SOUNDS DECREASED [None]
  - CHILLS [None]
  - COUGH [None]
  - DYSPNOEA [None]
  - HEART RATE INCREASED [None]
  - PALLOR [None]
  - RESPIRATORY RATE INCREASED [None]
  - WHEEZING [None]
